FAERS Safety Report 23187648 (Version 1)
Quarter: 2023Q4

REPORT INFORMATION
  Report Type: Spontaneous
  Country: US (occurrence: US)
  Receive Date: 20231115
  Receipt Date: 20231115
  Transmission Date: 20240110
  Serious: Yes (Other)
  Sender: FDA-Public Use
  Company Number: US-AMERICAN REGENT INC-2023002642

PATIENT
  Age: 71 Year
  Sex: Male
  Weight: 103.5 kg

DRUGS (4)
  1. VENOFER [Suspect]
     Active Substance: IRON SUCROSE
     Indication: Product used for unknown indication
     Dosage: UNK (DOSES 1 TO 16)
     Dates: start: 20230825, end: 2023
  2. VENOFER [Suspect]
     Active Substance: IRON SUCROSE
     Dosage: UNK
     Dates: start: 20231006, end: 20231006
  3. MIRCERA [Suspect]
     Active Substance: METHOXY POLYETHYLENE GLYCOL-EPOETIN BETA
     Indication: Nephrogenic anaemia
     Dosage: 200 MICROGRAM, 1 IN 2 WK (DOSES 1 AND 2)
     Dates: start: 20230908, end: 2023
  4. MIRCERA [Suspect]
     Active Substance: METHOXY POLYETHYLENE GLYCOL-EPOETIN BETA
     Dosage: 200 MICROGRAM
     Dates: start: 20231006, end: 20231006

REACTIONS (1)
  - Drug hypersensitivity [Recovered/Resolved]

NARRATIVE: CASE EVENT DATE: 20231006
